FAERS Safety Report 9637267 (Version 2)
Quarter: 2014Q1

REPORT INFORMATION
  Report Type: Spontaneous
  Country: US (occurrence: US)
  Receive Date: 20131022
  Receipt Date: 20140117
  Transmission Date: 20141002
  Serious: No
  Sender: FDA-Public Use
  Company Number: US-BIOGENIDEC-2013BI099073

PATIENT
  Sex: Female

DRUGS (8)
  1. TYSABRI [Suspect]
     Indication: MULTIPLE SCLEROSIS
     Route: 042
  2. BACLOFEN [Concomitant]
  3. CLONAZEPAM [Concomitant]
  4. VENTOLIN [Concomitant]
     Route: 055
  5. SERTRALINE HCL [Concomitant]
  6. PRO AIR HFA [Concomitant]
  7. NAPROXEN [Concomitant]
     Indication: PREMEDICATION
  8. ZYRTEC [Concomitant]
     Indication: PREMEDICATION

REACTIONS (6)
  - Feeling abnormal [Recovered/Resolved]
  - Urticaria [Recovered/Resolved]
  - Infusion related reaction [Recovered/Resolved]
  - Headache [Recovered/Resolved]
  - Dizziness [Recovered/Resolved]
  - Rash macular [Recovered/Resolved]
